FAERS Safety Report 11576500 (Version 2)
Quarter: 2015Q4

REPORT INFORMATION
  Report Type: Spontaneous
  Country: SE (occurrence: SE)
  Receive Date: 20150930
  Receipt Date: 20151016
  Transmission Date: 20160304
  Serious: Yes (Hospitalization, Other)
  Sender: FDA-Public Use
  Company Number: SE-PFIZER INC-2015320233

PATIENT
  Age: 63 Year
  Sex: Female

DRUGS (9)
  1. FOLACIN [Concomitant]
     Active Substance: FOLIC ACID
     Dosage: 10 MG, WEEKLY
     Dates: start: 2013
  2. PREDNISOLON [Concomitant]
     Active Substance: PREDNISOLONE
     Dosage: 5 MG, 1X/DAY
     Dates: start: 2010
  3. NAPROXEN. [Concomitant]
     Active Substance: NAPROXEN
     Dosage: 500 MG, AS NEEDED
  4. CALCICHEW D3 [Concomitant]
     Active Substance: CALCIUM\CHOLECALCIFEROL
     Dosage: 500 MG, 1X/DAY
  5. ALVEDON [Concomitant]
     Active Substance: ACETAMINOPHEN
     Dosage: 665 MG, AS NEEDED
  6. SALAZOPYRIN EN [Suspect]
     Active Substance: SULFASALAZINE
     Dosage: 1000 MG, 2X/DAY
     Route: 048
     Dates: start: 20150828, end: 20150921
  7. METHOTREXATE [Concomitant]
     Active Substance: METHOTREXATE
     Dosage: 20MG, 1 WEEKLY
     Dates: start: 2013
  8. SALAZOPYRIN EN [Suspect]
     Active Substance: SULFASALAZINE
     Indication: RHEUMATOID ARTHRITIS
     Dosage: 500 MG, 2X/DAY
     Route: 048
     Dates: start: 20150601
  9. OMEPRAZOL [Concomitant]
     Active Substance: OMEPRAZOLE
     Dosage: 20 MG, UNK
     Dates: start: 2014

REACTIONS (11)
  - Dyspnoea [Recovered/Resolved]
  - Pharyngeal oedema [Recovering/Resolving]
  - Pyrexia [Recovered/Resolved]
  - Abdominal distension [Unknown]
  - Nausea [Recovered/Resolved]
  - Red blood cell sedimentation rate increased [Unknown]
  - Abdominal pain upper [Recovered/Resolved]
  - Back pain [Not Recovered/Not Resolved]
  - Abdominal lymphadenopathy [Unknown]
  - Hyperhidrosis [Recovered/Resolved]
  - Swelling [Unknown]

NARRATIVE: CASE EVENT DATE: 2015
